FAERS Safety Report 20257698 (Version 2)
Quarter: 2022Q1

REPORT INFORMATION
  Report Type: Spontaneous
  Country: JP (occurrence: JP)
  Receive Date: 20211230
  Receipt Date: 20220120
  Transmission Date: 20220424
  Serious: Yes (Other)
  Sender: FDA-Public Use
  Company Number: JP-PFIZER INC-202101700034

PATIENT
  Age: 66 Year
  Sex: Female
  Weight: 45.9 kg

DRUGS (7)
  1. EFFEXOR [Suspect]
     Active Substance: VENLAFAXINE HYDROCHLORIDE
     Indication: Depression
     Dosage: 37.5 MG, 1X/DAY
     Route: 048
     Dates: start: 20211005, end: 20211011
  2. EFFEXOR [Suspect]
     Active Substance: VENLAFAXINE HYDROCHLORIDE
     Dosage: 75 MG, 1X/DAY
     Route: 048
     Dates: start: 20211012, end: 20211023
  3. MIRTAZAPINE [Suspect]
     Active Substance: MIRTAZAPINE
     Indication: Depression
     Dosage: 15 MG, 1X/DAY
     Route: 048
     Dates: start: 20210803, end: 202108
  4. MIRTAZAPINE [Suspect]
     Active Substance: MIRTAZAPINE
     Dosage: 30 MG, 1X/DAY
     Route: 048
     Dates: start: 20210812, end: 20210830
  5. MIRTAZAPINE [Suspect]
     Active Substance: MIRTAZAPINE
     Dosage: 45 MG, 1X/DAY
     Route: 048
     Dates: start: 20210831
  6. LITHIUM [Suspect]
     Active Substance: LITHIUM
     Indication: Bipolar I disorder
     Dosage: 200 MG, 1X/DAY
     Route: 048
     Dates: start: 20210921
  7. QUETIAPINE FUMARATE [Suspect]
     Active Substance: QUETIAPINE FUMARATE
     Indication: Schizophrenia
     Dosage: 25 MG, 1X/DAY
     Route: 048
     Dates: start: 20211020, end: 202110

REACTIONS (4)
  - Suicidal ideation [Recovering/Resolving]
  - Delusion [Unknown]
  - Anxiety [Unknown]
  - Irritability [Unknown]

NARRATIVE: CASE EVENT DATE: 20211005
